FAERS Safety Report 21329700 (Version 1)
Quarter: 2022Q3

REPORT INFORMATION
  Report Type: Spontaneous
  Country: US (occurrence: US)
  Receive Date: 20220913
  Receipt Date: 20220913
  Transmission Date: 20221027
  Serious: Yes (Other)
  Sender: FDA-Public Use
  Company Number: US-SA-SAC20220912001233

PATIENT

DRUGS (2)
  1. RANITIDINE HYDROCHLORIDE [Suspect]
     Active Substance: RANITIDINE HYDROCHLORIDE
     Dosage: UNK, PRESCRIPTION RANITIDINE FROM APPROXIMATELY 1980 TO 2000
     Route: 048
     Dates: start: 1980, end: 2000
  2. RANITIDINE HYDROCHLORIDE [Suspect]
     Active Substance: RANITIDINE HYDROCHLORIDE
     Dosage: UNK, OVER THE COUNTER RANITIDINE FROM APPROXIMATELY 1980 TO 2000
     Route: 048
     Dates: start: 1980, end: 2000

REACTIONS (1)
  - Breast cancer [Unknown]
